FAERS Safety Report 12988112 (Version 1)
Quarter: 2016Q4

REPORT INFORMATION
  Report Type: Report from Study
  Country: IT (occurrence: IT)
  Receive Date: 20161130
  Receipt Date: 20161130
  Transmission Date: 20170207
  Serious: Yes (Hospitalization, Other)
  Sender: FDA-Public Use
  Company Number: IT-BRISTOL-MYERS SQUIBB COMPANY-BMS-2016-100756

PATIENT
  Age: 65 Year
  Sex: Male

DRUGS (1)
  1. NIVOLUMAB [Suspect]
     Active Substance: NIVOLUMAB
     Indication: RENAL CELL CARCINOMA
     Dosage: 3 MG/KG, Q2WK
     Route: 042
     Dates: start: 20160309

REACTIONS (19)
  - Pancreatic enzymes increased [Unknown]
  - Blood glucose increased [Unknown]
  - Vision blurred [Unknown]
  - Haemoglobin decreased [Unknown]
  - Aspartate aminotransferase increased [Recovered/Resolved]
  - Asthenia [Unknown]
  - Cholelithiasis [Unknown]
  - Malaise [Unknown]
  - Blood potassium decreased [Unknown]
  - Blood alkaline phosphatase increased [Recovered/Resolved]
  - Blood lactate dehydrogenase increased [Recovered/Resolved]
  - Haematuria [Unknown]
  - Biliary colic [Unknown]
  - Transfusion [Unknown]
  - Pyrexia [Unknown]
  - Pruritus [Recovering/Resolving]
  - Arthralgia [Unknown]
  - Gamma-glutamyltransferase increased [Recovered/Resolved]
  - Transaminases increased [Recovered/Resolved]

NARRATIVE: CASE EVENT DATE: 20160317
